FAERS Safety Report 5567393-3 (Version None)
Quarter: 2007Q4

REPORT INFORMATION
  Report Type: 
  Country: None (occurrence: None)
  Receive Date: 20071214
  Receipt Date: 20071130
  Transmission Date: 20080405
  Serious: Yes (Hospitalization, Other)
  Sender: FDA-Public Use
  Company Number: 2007SP024154

PATIENT
  Age: 13 Year
  Sex: Female

DRUGS (2)
  1. CLARITYNE (LORATADINE 5MG/PSEUDOEPHEDRINE SULFATE 120MG) (LORATADIEN W [Suspect]
     Indication: RHINITIS ALLERGIC
     Dosage: 1 DF;BID;PO
     Route: 048
     Dates: start: 20071127, end: 20071128
  2. BENZODIAZEPINE (BENZODIAZEPINE DERIVATIVES) [Suspect]
     Indication: DRUG USE FOR UNKNOWN INDICATION

REACTIONS (5)
  - ALCOHOL USE [None]
  - CONVULSION [None]
  - DISORIENTATION [None]
  - LOSS OF CONSCIOUSNESS [None]
  - VOMITING [None]
